FAERS Safety Report 5385939-5 (Version None)
Quarter: 2007Q3

REPORT INFORMATION
  Report Type: 
  Country: None (occurrence: None)
  Receive Date: 20070710
  Receipt Date: 20070629
  Transmission Date: 20080115
  Serious: Yes (Other)
  Sender: FDA-Public Use
  Company Number: GXKR2007GB05632

PATIENT
  Age: 69 Year
  Sex: Female
  Weight: 76.4 kg

DRUGS (5)
  1. METFORMIN  (NGX) ( METFORMIN ) UNKNOWN [Suspect]
     Indication: TYPE 2 DIABETES MELLITUS
     Dosage: 500 MG, QD, ORAL
     Route: 048
     Dates: start: 20070503, end: 20070610
  2. ASPIRIN [Concomitant]
  3. DICLOFENAC SODIUM [Concomitant]
  4. LISINOPRIL [Concomitant]
  5. SIMVASTATIN [Concomitant]

REACTIONS (5)
  - ASTHENIA [None]
  - CONSTIPATION [None]
  - DYSPEPSIA [None]
  - FALL [None]
  - PARAESTHESIA [None]
